FAERS Safety Report 8204771-8 (Version None)
Quarter: 2012Q1

REPORT INFORMATION
  Report Type: 
  Country: None (occurrence: None)
  Receive Date: 20120313
  Receipt Date: 20120228
  Transmission Date: 20120608
  Serious: Yes (Hospitalization)
  Sender: FDA-Public Use
  Company Number: FR-MYLANLABS-2012S1004779

PATIENT
  Age: 60 Year
  Sex: Male

DRUGS (1)
  1. BACLOFEN [Suspect]
     Indication: PARESIS
     Route: 037

REACTIONS (8)
  - HYPOTENSION [None]
  - MYOCLONUS [None]
  - HYPOTONIA [None]
  - WITHDRAWAL SYNDROME [None]
  - RESPIRATORY DISTRESS [None]
  - DEPRESSED LEVEL OF CONSCIOUSNESS [None]
  - MUSCLE SPASTICITY [None]
  - ACCIDENTAL OVERDOSE [None]
